FAERS Safety Report 5501918-9 (Version None)
Quarter: 2007Q4

REPORT INFORMATION
  Report Type: 
  Country: None (occurrence: None)
  Receive Date: 20071030
  Receipt Date: 20071019
  Transmission Date: 20080405
  Serious: Yes (Other)
  Sender: FDA-Public Use
  Company Number: CH-ROCHE-527000

PATIENT
  Age: 73 Year
  Sex: Female

DRUGS (14)
  1. ROCEPHIN [Suspect]
     Indication: URINARY TRACT INFECTION
     Dosage: FREQUENCY REPORTED AS 1 TOTAL DRUG REPORTED AS ROCEPHIM 2 G I.V TROCKENAMPULLEN.
     Route: 041
     Dates: start: 20070109, end: 20070109
  2. SANDIMMUNE [Concomitant]
     Route: 048
  3. CELLCEPT [Concomitant]
     Route: 048
  4. LOPRESSOR [Concomitant]
     Dosage: FORM REPORTED AS COATED TABLETS, FILM
     Route: 048
  5. LOMIR [Concomitant]
     Route: 048
  6. PRAVASTATIN [Concomitant]
     Route: 048
  7. NEURONTIN [Concomitant]
     Route: 048
  8. ASPIRIN [Concomitant]
     Dosage: FORM REPORTED AS COATED TABLETS, FILM
     Route: 048
  9. NEXIUM [Concomitant]
     Route: 048
  10. ROCALTROL [Concomitant]
     Route: 048
  11. XANAX [Concomitant]
     Dosage: FORM REPORTED AS COATED TABLETS
     Route: 048
  12. RECORMON [Concomitant]
     Route: 058
  13. IMPORTAL [Concomitant]
     Dosage: AS NECESSARY
     Route: 048
  14. DAFALGAN [Concomitant]
     Dosage: AS NECESSARY
     Route: 048

REACTIONS (1)
  - ANGIOEDEMA [None]
